FAERS Safety Report 7305816-X (Version None)
Quarter: 2011Q1

REPORT INFORMATION
  Report Type: 
  Country: None (occurrence: None)
  Receive Date: 20110222
  Receipt Date: 20110214
  Transmission Date: 20110831
  Serious: Yes (Death, Hospitalization, Other)
  Sender: FDA-Public Use
  Company Number: CA-ROCHE-754424

PATIENT
  Sex: Male
  Weight: 250.8 kg

DRUGS (15)
  1. BEVACIZUMAB [Suspect]
     Indication: GLIOBLASTOMA
     Route: 042
     Dates: start: 20101124
  2. CRESTOR [Concomitant]
  3. DEXAMETHASONE [Concomitant]
     Route: 048
  4. METFORMIN [Concomitant]
  5. TYLENOL [Concomitant]
     Dosage: FREQUENCY: ONCE
     Route: 048
     Dates: start: 20101221, end: 20101221
  6. BEVACIZUMAB [Suspect]
     Route: 042
  7. TEMOZOLOMIDE [Concomitant]
     Route: 048
  8. ASPIRIN [Concomitant]
  9. TEGRETOL [Concomitant]
  10. METHYLPREDNISOLONE [Concomitant]
     Dosage: FREQUENCY: ONCE
     Route: 042
     Dates: start: 20101221, end: 20101221
  11. ZOPICLONE [Concomitant]
  12. BENADRYL [Concomitant]
     Dosage: FREQUENCY: ONCE
     Route: 048
     Dates: start: 20101221, end: 20101221
  13. RANITIDINE [Concomitant]
     Route: 048
  14. MAVIK [Concomitant]
  15. DILTIAZEM [Concomitant]
     Route: 048

REACTIONS (5)
  - PULMONARY THROMBOSIS [None]
  - PNEUMONIA [None]
  - NEOPLASM MALIGNANT [None]
  - DEEP VEIN THROMBOSIS [None]
  - DEATH [None]
